FAERS Safety Report 22976922 (Version 4)
Quarter: 2025Q3

REPORT INFORMATION
  Report Type: Spontaneous
  Country: US (occurrence: US)
  Receive Date: 20230925
  Receipt Date: 20250728
  Transmission Date: 20251021
  Serious: No
  Sender: SANOFI AVENTIS
  Company Number: US-SA-SAC20230919000296

PATIENT
  Sex: Male

DRUGS (8)
  1. KEVZARA [Suspect]
     Active Substance: SARILUMAB
     Indication: Rheumatoid arthritis
     Dosage: 200 MG, QOW
     Route: 058
     Dates: start: 20211116
  2. WEGOVY [Concomitant]
     Active Substance: SEMAGLUTIDE
  3. NP THYROID [Concomitant]
     Active Substance: LEVOTHYROXINE\LIOTHYRONINE
  4. HYDROCODONE BITARTRATE AND ACETAMINOPHEN [Concomitant]
     Active Substance: ACETAMINOPHEN\HYDROCODONE BITARTRATE
  5. SULFASALAZINE [Concomitant]
     Active Substance: SULFASALAZINE
  6. OXYCODONE [Concomitant]
     Active Substance: OXYCODONE
  7. Chlorhex gluc alco [Concomitant]
  8. CELEBREX [Concomitant]
     Active Substance: CELECOXIB

REACTIONS (3)
  - Pain [Recovering/Resolving]
  - Therapeutic response decreased [Recovering/Resolving]
  - Arthralgia [Unknown]
